FAERS Safety Report 14856404 (Version 1)
Quarter: 2018Q2

REPORT INFORMATION
  Report Type: Spontaneous
  Country: US (occurrence: US)
  Receive Date: 20180507
  Receipt Date: 20180507
  Transmission Date: 20180711
  Serious: No
  Sender: FDA-Public Use
  Company Number: US-ROCHE-2049076

PATIENT
  Age: 70 Year
  Sex: Female
  Weight: 51.76 kg

DRUGS (1)
  1. ESBRIET [Suspect]
     Active Substance: PIRFENIDONE
     Indication: IDIOPATHIC PULMONARY FIBROSIS
     Route: 048
     Dates: start: 20171127, end: 20171227

REACTIONS (3)
  - Decreased appetite [Unknown]
  - Dizziness [Unknown]
  - Gastric disorder [Unknown]

NARRATIVE: CASE EVENT DATE: 20171228
